FAERS Safety Report 24636951 (Version 2)
Quarter: 2024Q4

REPORT INFORMATION
  Report Type: Other
  Country: US (occurrence: US)
  Receive Date: 20241119
  Receipt Date: 20241206
  Transmission Date: 20250115
  Serious: Yes (Other)
  Sender: APPCO PHARMA LLC
  Company Number: US-Appco Pharma LLC-2165358

PATIENT
  Sex: Female
  Weight: 59.091 kg

DRUGS (1)
  1. ACETAZOLAMIDE [Suspect]
     Active Substance: ACETAZOLAMIDE
     Indication: Idiopathic intracranial hypertension

REACTIONS (1)
  - Neuropathy peripheral [Unknown]
